FAERS Safety Report 6933115-4 (Version None)
Quarter: 2010Q3

REPORT INFORMATION
  Report Type: 
  Country: None (occurrence: None)
  Receive Date: 20100819
  Receipt Date: 20100806
  Transmission Date: 20110219
  Serious: Yes (Hospitalization)
  Sender: FDA-Public Use
  Company Number: US-ELI_LILLY_AND_COMPANY-US201008002938

PATIENT
  Sex: Female

DRUGS (7)
  1. FORTEO [Suspect]
     Indication: OSTEOPOROSIS
     Dosage: 20 UG, DAILY (1/D)
     Route: 065
     Dates: start: 20100601, end: 20100727
  2. PREDNISONE [Concomitant]
     Dosage: UNK, UNKNOWN
     Route: 065
  3. RANITIDINE [Concomitant]
     Dosage: UNK, UNKNOWN
     Route: 065
  4. THEOPHYLLINE [Concomitant]
     Dosage: 200 MG, UNKNOWN
     Route: 065
  5. VAGIFEM [Concomitant]
     Dosage: UNK, UNKNOWN
     Route: 065
  6. VALTREX [Concomitant]
     Dosage: 500 MG, UNKNOWN
     Route: 065
  7. LEVOTHYROXINE SODIUM [Concomitant]
     Dosage: 50 UG, UNKNOWN
     Route: 065

REACTIONS (3)
  - COAGULOPATHY [None]
  - FATIGUE [None]
  - NEPHROLITHIASIS [None]
